FAERS Safety Report 8923688 (Version 1)
Quarter: 2012Q4

REPORT INFORMATION
  Report Type: Spontaneous
  Country: SG (occurrence: None)
  Receive Date: 20121115
  Receipt Date: 20121115
  Transmission Date: 20130627
  Serious: Yes (Hospitalization)
  Sender: FDA-Public Use
  Company Number: IMP_06073_2012

PATIENT
  Age: 12 Year
  Sex: Male

DRUGS (3)
  1. OMEPRAZOLE (OMEPRAZOLE) [Suspect]
     Indication: HELICOBACTER INFECTION
  2. AMOXICILLIN [Concomitant]
  3. CLARITHROMYCIN [Concomitant]

REACTIONS (1)
  - Myositis [None]
